FAERS Safety Report 12126433 (Version 1)
Quarter: 2016Q1

REPORT INFORMATION
  Report Type: Spontaneous
  Country: JP (occurrence: JP)
  Receive Date: 20160229
  Receipt Date: 20160229
  Transmission Date: 20160526
  Serious: Yes (Death, Other)
  Sender: FDA-Public Use
  Company Number: PHHY2016JP025749

PATIENT
  Age: 83 Year
  Sex: Male

DRUGS (1)
  1. CICLOSPORIN [Suspect]
     Active Substance: CYCLOSPORINE
     Indication: IDIOPATHIC PULMONARY FIBROSIS
     Route: 065

REACTIONS (2)
  - Idiopathic pulmonary fibrosis [Unknown]
  - Pneumonia [Fatal]
